FAERS Safety Report 6012200-8 (Version None)
Quarter: 2008Q4

REPORT INFORMATION
  Report Type: 
  Country: None (occurrence: None)
  Receive Date: 20081218
  Receipt Date: 20081209
  Transmission Date: 20090506
  Serious: Yes (Hospitalization)
  Sender: FDA-Public Use
  Company Number: KR-ROCHE-599611

PATIENT
  Sex: Male
  Weight: 65.8 kg

DRUGS (19)
  1. CAPECITABINE [Suspect]
     Indication: GASTRIC CANCER
     Dosage: FREQUENCY: D1- 14Q3W (TWICE DAILY FOR 14 DAYS EVERY 3 WEEKS, PER PROTOCOL). TEMPORARLY INTERRUPTED
     Route: 048
     Dates: start: 20081121, end: 20081126
  2. CAPECITABINE [Suspect]
     Dosage: FORMULATION: FILM-COATED TABLET (PER PROTOCOL).
     Route: 048
     Dates: start: 20081201
  3. BLINDED BEVACIZUMAB [Suspect]
     Indication: GASTRIC CANCER
     Dosage: DOSAGE FORM : INFUSION, DOSE BLINDED. DATE OF LAST DOSE PRIOR TO SAE: 21 NOVEMBER 2008.
     Route: 042
     Dates: start: 20081121
  4. CISPLATIN [Suspect]
     Indication: GASTRIC CANCER
     Dosage: DOSAGE FORM INFUSION. DATE OF LAST DOSE PRIOR TO SAE: 21 NOVEMBER 2008.
     Route: 042
     Dates: start: 20081121
  5. DEXAMETHASONE [Concomitant]
     Route: 042
     Dates: start: 20081121, end: 20081121
  6. GRANISETRON [Concomitant]
     Route: 042
     Dates: start: 20081121, end: 20081121
  7. OXYCODONE [Concomitant]
     Route: 048
     Dates: start: 20081120
  8. METOCLOPRAMIDE [Concomitant]
     Route: 048
     Dates: start: 20081121
  9. MILK OF MAGNESIA [Concomitant]
     Route: 048
     Dates: start: 20081122, end: 20081130
  10. LACTULOSE [Concomitant]
     Route: 048
     Dates: start: 20081125
  11. ALBUMIN (HUMAN) [Concomitant]
     Route: 042
     Dates: start: 20081116, end: 20081127
  12. DEXAMETHASONE [Concomitant]
     Route: 048
     Dates: start: 20081122, end: 20081123
  13. GRANISETRON [Concomitant]
     Route: 048
     Dates: start: 20081122, end: 20081126
  14. CACO3 [Concomitant]
     Route: 048
     Dates: start: 20081111, end: 20081202
  15. NUTRIFLEX [Concomitant]
     Dosage: DRUG REPORTED AS: NUTRIFLEX PERI
     Dates: start: 20081128, end: 20081203
  16. SODIUM CHLORIDE [Concomitant]
     Dates: start: 20081128, end: 20081130
  17. FRUSEMIDE [Concomitant]
     Dates: start: 20081127, end: 20081127
  18. HUMAN INSULIN [Concomitant]
     Dates: start: 20081128, end: 20081128
  19. ALAXYL [Concomitant]
     Dosage: DRUG REPORTED AS: ALAXYL GRANUL.
     Dates: start: 20081203

REACTIONS (2)
  - BLOOD CREATININE INCREASED [None]
  - BLOOD UREA INCREASED [None]
